FAERS Safety Report 7920825-5 (Version None)
Quarter: 2011Q4

REPORT INFORMATION
  Report Type: 
  Country: None (occurrence: None)
  Receive Date: 20111117
  Receipt Date: 20110726
  Transmission Date: 20120403
  Serious: No
  Sender: FDA-Public Use
  Company Number: US-GLAXOSMITHKLINE-A0938367A

PATIENT
  Age: 81 Year
  Sex: Male

DRUGS (2)
  1. VOTRIENT [Suspect]
     Indication: RENAL CELL CARCINOMA
     Dosage: 3TAB PER DAY
     Route: 048
     Dates: start: 20110601
  2. OTHER MEDICATIONS [Concomitant]

REACTIONS (1)
  - DIARRHOEA [None]
